FAERS Safety Report 13397675 (Version 1)
Quarter: 2017Q2

REPORT INFORMATION
  Report Type: Not Available
  Country: NP (occurrence: NP)
  Receive Date: 20170403
  Receipt Date: 20170403
  Transmission Date: 20170830
  Serious: Yes (Other)
  Sender: FDA-Public Use
  Company Number: NP-ANIPHARMA-2017-NP-000001

PATIENT
  Age: 3 Day
  Sex: Male
  Weight: 2.09 kg

DRUGS (1)
  1. IBUPROFEN (NON-SPECIFIC) [Suspect]
     Active Substance: IBUPROFEN
     Dosage: 10 MG/KG
     Route: 048

REACTIONS (3)
  - Hyponatraemia [Unknown]
  - Seizure [Unknown]
  - Gastrointestinal haemorrhage [Unknown]
